FAERS Safety Report 11814146 (Version 1)
Quarter: 2015Q4

REPORT INFORMATION
  Report Type: Spontaneous
  Country: UA (occurrence: UA)
  Receive Date: 20151209
  Receipt Date: 20151209
  Transmission Date: 20160305
  Serious: Yes (Hospitalization)
  Sender: FDA-Public Use
  Company Number: UA-BAYER-2015-484017

PATIENT
  Age: 26 Year
  Sex: Female

DRUGS (1)
  1. JAYDESS [Suspect]
     Active Substance: LEVONORGESTREL
     Indication: CONTRACEPTION
     Dosage: 14 MCG/24HR, CONT
     Route: 015
     Dates: start: 20151126, end: 20151202

REACTIONS (1)
  - Post procedural haemorrhage [Not Recovered/Not Resolved]

NARRATIVE: CASE EVENT DATE: 20151126
